FAERS Safety Report 7232516-7 (Version None)
Quarter: 2011Q1

REPORT INFORMATION
  Report Type: 
  Country: None (occurrence: None)
  Receive Date: 20110119
  Receipt Date: 20100914
  Transmission Date: 20110831
  Serious: Yes (Other)
  Sender: FDA-Public Use
  Company Number: US-BAYER-201021684NA

PATIENT
  Sex: Female
  Weight: 53.515 kg

DRUGS (24)
  1. MAGNESIUM CITRATE [Concomitant]
     Indication: CONSTIPATION
     Dosage: 300 ML, QD
     Route: 048
  2. MIRALAX [Concomitant]
     Indication: CONSTIPATION
     Dosage: 17 G, UNK
  3. ZONISAMIDE [Concomitant]
     Dosage: 100 MG, BID
     Route: 048
     Dates: start: 20080101
  4. GABAPENTIN [Concomitant]
     Dosage: 100 MG, TID
     Route: 048
     Dates: start: 20080101
  5. RANITIDINE [Concomitant]
  6. IMITREX [Concomitant]
     Dosage: UNK
     Dates: start: 20080101
  7. MIRAPEX [Concomitant]
  8. PHENERGAN [Concomitant]
  9. YASMIN [Suspect]
     Indication: ACNE
  10. COLACE [Concomitant]
     Dosage: 100 MG, UNK
  11. CELEBREX [Concomitant]
     Dosage: 100 MG, UNK
     Route: 048
     Dates: start: 20080101
  12. SPRINTEC [Concomitant]
  13. AMITRIPTYLINE [Concomitant]
     Indication: MIGRAINE
     Dosage: 10 MG, BID
     Route: 048
     Dates: start: 20080101
  14. MAXALT-MLT [Concomitant]
     Indication: MIGRAINE
     Dosage: UNK
     Dates: start: 20080101
  15. CYCLOBENZAPRINE [Concomitant]
  16. YAZ [Suspect]
     Indication: ACNE
     Dosage: UNK
     Dates: start: 20080101
  17. FROVA [Concomitant]
     Dosage: 2.5 MG, UNK
     Route: 048
     Dates: start: 20080101
  18. RANITIDINE [Concomitant]
     Indication: DYSPEPSIA
     Dosage: 300 MG, UNK
  19. NAPROXEN SODIUM [Concomitant]
     Dosage: 550 MG, UNK
     Dates: start: 20070101, end: 20090101
  20. COQ10 [Concomitant]
  21. MULTI-VITAMINS [Concomitant]
  22. YAZ [Suspect]
     Indication: CONTRACEPTION
  23. OCELLA [Suspect]
     Indication: ACNE
  24. PROPRANOLOL [Concomitant]
     Indication: MIGRAINE
     Dosage: 40 MG, BID
     Route: 048
     Dates: start: 20080101

REACTIONS (7)
  - CHOLELITHIASIS [None]
  - CHOLECYSTITIS CHRONIC [None]
  - BLOOD PRESSURE ABNORMAL [None]
  - PYREXIA [None]
  - MIGRAINE [None]
  - BILIARY COLIC [None]
  - NAUSEA [None]
